FAERS Safety Report 5796162-4 (Version None)
Quarter: 2008Q3

REPORT INFORMATION
  Report Type: 
  Country: None (occurrence: None)
  Receive Date: 20080701
  Receipt Date: 20080617
  Transmission Date: 20090109
  Serious: Yes (Hospitalization)
  Sender: FDA-Public Use
  Company Number: ES-ELI_LILLY_AND_COMPANY-ES200806004910

PATIENT
  Age: 40 Year
  Sex: Female

DRUGS (5)
  1. FORTEO [Suspect]
     Indication: OSTEOPOROSIS
     Dosage: 20 UG, UNK
     Route: 058
     Dates: start: 20080401
  2. FORTEO [Suspect]
     Dosage: 20 UG, UNK
     Route: 058
  3. DISGREN [Concomitant]
     Dosage: UNK, UNK
  4. OMEPRAZOLE [Concomitant]
     Dosage: UNK, UNK
  5. ACETAMINOPHEN [Concomitant]
     Dosage: UNK, UNK

REACTIONS (3)
  - MIGRAINE [None]
  - PAIN IN EXTREMITY [None]
  - THROMBOSIS [None]
